FAERS Safety Report 13680004 (Version 2)
Quarter: 2018Q1

REPORT INFORMATION
  Report Type: Spontaneous
  Country: IT (occurrence: IT)
  Receive Date: 20170622
  Receipt Date: 20180306
  Transmission Date: 20180508
  Serious: Yes (Other)
  Sender: FDA-Public Use
  Company Number: IT-PFIZER INC-2017267518

PATIENT
  Age: 2 Year
  Sex: Male
  Weight: 12 kg

DRUGS (2)
  1. ZITROMAX [Suspect]
     Active Substance: AZITHROMYCIN
     Indication: TONSILLITIS
     Dosage: 1 DF, DAILY
     Route: 048
     Dates: start: 20170602, end: 20170603
  2. NUROFEN (GSL) [Concomitant]
     Active Substance: IBUPROFEN
     Dosage: 5 ML, UNK
     Route: 048

REACTIONS (1)
  - Erythema [Recovering/Resolving]

NARRATIVE: CASE EVENT DATE: 20170602
